FAERS Safety Report 13163739 (Version 5)
Quarter: 2017Q1

REPORT INFORMATION
  Report Type: Spontaneous
  Country: JP (occurrence: JP)
  Receive Date: 20170130
  Receipt Date: 20170214
  Transmission Date: 20170428
  Serious: Yes (Hospitalization)
  Sender: FDA-Public Use
  Company Number: PHJP2017JP002974

PATIENT
  Age: 58 Year
  Sex: Female
  Weight: 45 kg

DRUGS (2)
  1. DICLOFENAC [Suspect]
     Active Substance: DICLOFENAC
     Indication: PRODUCT USED FOR UNKNOWN INDICATION
     Dosage: UNK
     Route: 048
  2. LOXOPROFEN SODIUM [Concomitant]
     Active Substance: LOXOPROFEN SODIUM
     Indication: PRODUCT USED FOR UNKNOWN INDICATION
     Dosage: UNK
     Route: 065

REACTIONS (10)
  - Abdominal rigidity [Unknown]
  - Diverticulum intestinal [Unknown]
  - Abdominal tenderness [Unknown]
  - Mesenteric panniculitis [Unknown]
  - Abdominal rebound tenderness [Unknown]
  - Intestinal cyst [Unknown]
  - Abdominal distension [Unknown]
  - Pneumoretroperitoneum [Unknown]
  - Ascites [Unknown]
  - Peritonitis [Unknown]
